FAERS Safety Report 23907358 (Version 1)
Quarter: 2024Q2

REPORT INFORMATION
  Report Type: Spontaneous
  Country: CN (occurrence: CN)
  Receive Date: 20240528
  Receipt Date: 20240528
  Transmission Date: 20240715
  Serious: Yes (Hospitalization, Other)
  Sender: FDA-Public Use
  Company Number: CN-002147023-NVSC2024CN111190

PATIENT
  Age: 71 Year
  Sex: Male
  Weight: 62.5 kg

DRUGS (7)
  1. ENTRESTO [Suspect]
     Active Substance: SACUBITRIL\VALSARTAN
     Indication: Cerebral infarction
     Dosage: 200 MG, QD
     Route: 048
     Dates: start: 20240211, end: 20240215
  2. FUROSEMIDE [Suspect]
     Active Substance: FUROSEMIDE
     Indication: Cerebral infarction
     Dosage: 20 MG, QD
     Route: 048
     Dates: start: 20240211, end: 20240216
  3. FUROSEMIDE [Suspect]
     Active Substance: FUROSEMIDE
     Dosage: 10 MG, QD
     Route: 048
     Dates: start: 20240216
  4. METOPROLOL SUCCINATE [Suspect]
     Active Substance: METOPROLOL SUCCINATE
     Indication: Cerebral infarction
     Dosage: 47.5 MG, QD
     Route: 048
     Dates: start: 20240211, end: 20240216
  5. METOPROLOL SUCCINATE [Suspect]
     Active Substance: METOPROLOL SUCCINATE
     Dosage: 23.75 MG (QM)
     Route: 048
     Dates: start: 20240216
  6. SPIRONOLACTONE [Suspect]
     Active Substance: SPIRONOLACTONE
     Indication: Cerebral infarction
     Dosage: 20 MG, QD
     Route: 048
     Dates: start: 20240211, end: 20240216
  7. SPIRONOLACTONE [Suspect]
     Active Substance: SPIRONOLACTONE
     Dosage: 10 MG, BID
     Route: 048
     Dates: start: 20240216

REACTIONS (3)
  - Hypotension [Recovering/Resolving]
  - Blood pressure systolic increased [Recovering/Resolving]
  - Off label use [Unknown]

NARRATIVE: CASE EVENT DATE: 20240211
